FAERS Safety Report 10218778 (Version 1)
Quarter: 2014Q2

REPORT INFORMATION
  Report Type: Spontaneous
  Country: US (occurrence: None)
  Receive Date: 20140604
  Receipt Date: 20140604
  Transmission Date: 20141212
  Serious: Yes (Other)
  Sender: FDA-Public Use
  Company Number: None

PATIENT
  Age: 52 Year
  Sex: Female
  Weight: 61.24 kg

DRUGS (1)
  1. DULOXETINE DELAYED-RELEASE CAPSULES DISTRIBUTED BY CITRON PHARMALLC 2 TOWER CENTER BLVD, EAST BRUNSWICK, NJ 08816 MADE IN INDIA [Suspect]
     Indication: FIBROMYALGIA
     Dosage: 60MG ?90?ONE DAILY?BY MOUTH?THERAPY DATES 10/17/13 STOP DATE 5/25/13
     Route: 048
     Dates: start: 20131017, end: 20140525

REACTIONS (3)
  - Product substitution issue [None]
  - General physical health deterioration [None]
  - Product quality issue [None]
